FAERS Safety Report 14241155 (Version 5)
Quarter: 2020Q2

REPORT INFORMATION
  Report Type: Spontaneous
  Country: US (occurrence: US)
  Receive Date: 20171130
  Receipt Date: 20200611
  Transmission Date: 20200713
  Serious: No
  Sender: FDA-Public Use
  Company Number: US-BIOMARINAP-US-2017-116188

PATIENT
  Age: 23 Year
  Sex: Female

DRUGS (2)
  1. ALDURAZYME [Suspect]
     Active Substance: LARONIDASE
     Indication: MUCOPOLYSACCHARIDOSIS I
     Dosage: UNK, QW
     Route: 041
     Dates: start: 20090316
  2. ALDURAZYME [Suspect]
     Active Substance: LARONIDASE
     Dosage: 55 MILLIGRAM, QW
     Route: 041
     Dates: start: 20090416

REACTIONS (8)
  - Epistaxis [Recovered/Resolved]
  - Musculoskeletal stiffness [Recovered/Resolved]
  - Influenza [Recovering/Resolving]
  - Muscle strain [Recovering/Resolving]
  - Malaise [Not Recovered/Not Resolved]
  - Back disorder [Not Recovered/Not Resolved]
  - Burning sensation [Recovered/Resolved]
  - Visual impairment [Not Recovered/Not Resolved]

NARRATIVE: CASE EVENT DATE: 201707
